FAERS Safety Report 7188971 (Version 1)
Quarter: 2020Q3

REPORT INFORMATION
  Report Type: Report from Study
  Country: CA (occurrence: CA)
  Receive Date: 20091125
  Receipt Date: 20091125
  Transmission Date: 20201104
  Serious: Yes (Hospitalization)
  Sender: FDA-Public Use
  Company Number: CA-JNJFOC-20090601263

PATIENT
  Age: 50 Year
  Sex: Male
  Weight: 122 kg

DRUGS (17)
  1. CNTO 1275 [Suspect]
     Active Substance: USTEKINUMAB
     Route: 058
  2. CNTO 1275 [Suspect]
     Active Substance: USTEKINUMAB
     Route: 058
  3. CNTO 1275 [Suspect]
     Active Substance: USTEKINUMAB
     Route: 058
  4. CNTO 1275 [Suspect]
     Active Substance: USTEKINUMAB
     Route: 058
  5. CNTO 1275 [Suspect]
     Active Substance: USTEKINUMAB
     Route: 058
  6. CNTO 1275 [Suspect]
     Active Substance: USTEKINUMAB
     Indication: PSORIASIS
     Route: 058
  7. CNTO 1275 [Suspect]
     Active Substance: USTEKINUMAB
     Route: 058
  8. CNTO 1275 [Suspect]
     Active Substance: USTEKINUMAB
     Route: 058
  9. HYDROCHLOROTHIAZIDE. [Concomitant]
     Active Substance: HYDROCHLOROTHIAZIDE
     Route: 048
  10. HYDROCORTISONE. [Concomitant]
     Active Substance: HYDROCORTISONE
     Indication: PSORIASIS
     Route: 061
  11. CNTO 1275 [Suspect]
     Active Substance: USTEKINUMAB
     Route: 058
  12. CNTO 1275 [Suspect]
     Active Substance: USTEKINUMAB
     Route: 058
  13. CNTO 1275 [Suspect]
     Active Substance: USTEKINUMAB
     Route: 058
  14. CNTO 1275 [Suspect]
     Active Substance: USTEKINUMAB
     Route: 058
  15. CNTO 1275 [Suspect]
     Active Substance: USTEKINUMAB
     Route: 058
  16. CNTO 1275 [Suspect]
     Active Substance: USTEKINUMAB
     Route: 058
  17. CNTO 1275 [Suspect]
     Active Substance: USTEKINUMAB
     Route: 058

REACTIONS (1)
  - Diverticular perforation [Recovered/Resolved]

NARRATIVE: CASE EVENT DATE: 20090521
